FAERS Safety Report 21159799 (Version 7)
Quarter: 2024Q3

REPORT INFORMATION
  Report Type: Report from Study
  Country: DE (occurrence: DE)
  Receive Date: 20220802
  Receipt Date: 20240712
  Transmission Date: 20241017
  Serious: Yes (Other)
  Sender: ROCHE
  Company Number: DE-ROCHE-2848648

PATIENT
  Age: 54 Year
  Sex: Female

DRUGS (8)
  1. OCREVUS [Suspect]
     Active Substance: OCRELIZUMAB
     Indication: Relapsing-remitting multiple sclerosis
     Route: 042
     Dates: start: 20201118
  2. OCREVUS [Suspect]
     Active Substance: OCRELIZUMAB
     Route: 042
  3. OCREVUS [Suspect]
     Active Substance: OCRELIZUMAB
     Route: 042
     Dates: start: 20201118
  4. COMIRNATY (TOZINAMERAN) [Suspect]
     Active Substance: TOZINAMERAN
     Indication: COVID-19 prophylaxis
     Dosage: INJECTION SITE: RIGHT ARM
     Route: 065
     Dates: end: 20210412
  5. COMIRNATY (TOZINAMERAN) [Suspect]
     Active Substance: TOZINAMERAN
     Dosage: INJECTION SITE: LEFT ARM
     Route: 065
     Dates: start: 20210517, end: 20220331
  6. IBUPROFEN [Concomitant]
     Active Substance: IBUPROFEN
     Route: 042
     Dates: start: 20201118
  7. ACYCLOVIR [Concomitant]
     Active Substance: ACYCLOVIR
  8. BOTOX [Concomitant]
     Active Substance: ONABOTULINUMTOXINA

REACTIONS (23)
  - Pain in extremity [Recovered/Resolved]
  - Headache [Recovered/Resolved]
  - Musculoskeletal pain [Recovered/Resolved]
  - SARS-CoV-2 antibody test negative [Not Recovered/Not Resolved]
  - Nasopharyngitis [Recovered/Resolved]
  - B-lymphocyte count decreased [Recovered/Resolved]
  - Fatigue [Recovered/Resolved]
  - COVID-19 [Unknown]
  - Oral herpes [Recovered/Resolved]
  - Urine analysis abnormal [Not Recovered/Not Resolved]
  - White blood cell count increased [Not Recovered/Not Resolved]
  - Uhthoff^s phenomenon [Recovered/Resolved]
  - Bladder disorder [Recovered/Resolved]
  - Neuralgia [Recovering/Resolving]
  - Platelet count increased [Recovered/Resolved]
  - T-lymphocyte count increased [Not Recovered/Not Resolved]
  - CD4 lymphocytes increased [Not Recovered/Not Resolved]
  - Urinary tract disorder [Recovering/Resolving]
  - Blood fibrinogen increased [Recovering/Resolving]
  - pH urine increased [Recovered/Resolved]
  - Blood calcium increased [Not Recovered/Not Resolved]
  - Red blood cell count increased [Not Recovered/Not Resolved]
  - Arthralgia [Recovering/Resolving]

NARRATIVE: CASE EVENT DATE: 20210101
